FAERS Safety Report 8191312-7 (Version None)
Quarter: 2012Q1

REPORT INFORMATION
  Report Type: 
  Country: None (occurrence: None)
  Receive Date: 20120307
  Receipt Date: 20120305
  Transmission Date: 20120608
  Serious: Yes (Other)
  Sender: FDA-Public Use
  Company Number: US-PFIZER INC-2012058398

PATIENT
  Sex: Female

DRUGS (1)
  1. LIPITOR [Suspect]
     Dosage: UNK
     Dates: start: 20020305

REACTIONS (4)
  - SYSTEMIC LUPUS ERYTHEMATOSUS [None]
  - MYOCARDIAL INFARCTION [None]
  - CARDIAC DISORDER [None]
  - RHEUMATOID ARTHRITIS [None]
